FAERS Safety Report 9780344 (Version 1)
Quarter: 2013Q4

REPORT INFORMATION
  Report Type: Spontaneous
  Country: FR (occurrence: FR)
  Receive Date: 20131224
  Receipt Date: 20131224
  Transmission Date: 20140711
  Serious: Yes (Death, Hospitalization, Disabling)
  Sender: FDA-Public Use
  Company Number: FR-ROCHE-1319179

PATIENT
  Age: 64 Year
  Sex: Male

DRUGS (17)
  1. KYTRIL [Suspect]
     Indication: LUNG NEOPLASM MALIGNANT
     Dosage: SINGLE DOSE
     Route: 048
     Dates: start: 20131004
  2. CARBOPLATIN [Suspect]
     Indication: LUNG NEOPLASM MALIGNANT
     Dosage: HOSPIRA, SINGLE DOSE, 10 MG/ML
     Route: 042
     Dates: start: 20131004
  3. PACLITAXEL [Suspect]
     Indication: LUNG NEOPLASM MALIGNANT
     Dosage: KABI, SINGLE DOSE, 6 MG/ML
     Route: 042
     Dates: start: 20131004
  4. SOLU-MEDROL [Suspect]
     Indication: PRODUCT USED FOR UNKNOWN INDICATION
     Dosage: 120 MG/2 ML SINGLE DOSE
     Route: 042
     Dates: start: 20131004
  5. POLARAMINE [Suspect]
     Indication: PRODUCT USED FOR UNKNOWN INDICATION
     Dosage: 5 MG/1 ML; SINGLE DOSE
     Route: 058
     Dates: start: 20131004
  6. AZANTAC [Suspect]
     Indication: PRODUCT USED FOR UNKNOWN INDICATION
     Dosage: 50 MG/2 ML; SINGLE DOSE
     Route: 042
     Dates: start: 20131004
  7. EMEND [Suspect]
     Indication: PRODUCT USED FOR UNKNOWN INDICATION
     Route: 048
     Dates: start: 20131004, end: 20131007
  8. ALDACTONE (FRANCE) [Concomitant]
     Dosage: SCORED FILM-COATED TABLET
     Route: 048
  9. LAROXYL [Concomitant]
     Route: 048
  10. XANAX [Concomitant]
     Dosage: SCORED TABLET
     Route: 048
  11. OGAST [Concomitant]
     Dosage: ENTERIC-COATED MICROGRANULES IN CAPSULE
     Route: 048
  12. MIFLONIL [Concomitant]
     Route: 065
  13. ONBREZ [Concomitant]
     Route: 065
  14. BRONCHODUAL [Concomitant]
  15. ZOPHREN [Concomitant]
     Dosage: 2/D
     Route: 065
  16. PRIMPERAN (FRANCE) [Concomitant]
     Route: 065
  17. SOLUPRED (FRANCE) [Concomitant]
     Route: 065

REACTIONS (2)
  - Cerebral ischaemia [Fatal]
  - Hyponatraemia [Unknown]
